FAERS Safety Report 11543891 (Version 1)
Quarter: 2015Q3

REPORT INFORMATION
  Report Type: Spontaneous
  Country: GB (occurrence: GB)
  Receive Date: 20150924
  Receipt Date: 20150924
  Transmission Date: 20151125
  Serious: Yes (Other)
  Sender: FDA-Public Use
  Company Number: GB-AXELLIA-000861

PATIENT
  Age: 19 Year
  Sex: Male

DRUGS (1)
  1. TOBRAMYCIN. [Suspect]
     Active Substance: TOBRAMYCIN
     Indication: PRODUCT USED FOR UNKNOWN INDICATION
     Dosage: ALSO RECEIVED DRY POWDER INHALER IN ADDITION TO ONCE DAILY INTRAVENOUS
     Route: 042

REACTIONS (2)
  - Skin toxicity [Unknown]
  - Drug level increased [Unknown]
